FAERS Safety Report 14451770 (Version 2)
Quarter: 2018Q1

REPORT INFORMATION
  Report Type: Spontaneous
  Country: US (occurrence: US)
  Receive Date: 20180129
  Receipt Date: 20180314
  Transmission Date: 20180509
  Serious: Yes (Other)
  Sender: FDA-Public Use
  Company Number: US-009507513-1801USA013077

PATIENT
  Age: 52 Year
  Sex: Male

DRUGS (1)
  1. INTRON A [Suspect]
     Active Substance: INTERFERON ALFA-2B
     Indication: MALIGNANT MELANOMA
     Dosage: 15 MILLION IU (STRENGTH: 50 MILLION IU), THREE TIMES A WEEK
     Route: 058
     Dates: start: 20170623, end: 20180116

REACTIONS (3)
  - White blood cell count decreased [Unknown]
  - Hepatic enzyme increased [Unknown]
  - Retinopathy [Unknown]

NARRATIVE: CASE EVENT DATE: 20180110
